FAERS Safety Report 15570561 (Version 1)
Quarter: 2018Q4

REPORT INFORMATION
  Report Type: Spontaneous
  Country: US (occurrence: US)
  Receive Date: 20181031
  Receipt Date: 20181031
  Transmission Date: 20190205
  Serious: No
  Sender: FDA-Public Use
  Company Number: US-009507513-2000-05-1452

PATIENT
  Sex: Female

DRUGS (2)
  1. ELOCON [Suspect]
     Active Substance: MOMETASONE FUROATE
     Indication: ILL-DEFINED DISORDER
     Dosage: DOSE: UNKNOWN, DURATION: UNKNOWN
     Route: 061
  2. LOTRISONE [Suspect]
     Active Substance: BETAMETHASONE DIPROPIONATE\CLOTRIMAZOLE
     Indication: ILL-DEFINED DISORDER
     Dosage: DOSE: UNKNOWN, DURATION: UNKNOWN
     Route: 061

REACTIONS (3)
  - Skin striae [Unknown]
  - Exposure during pregnancy [Recovered/Resolved]
  - Breast feeding [Unknown]
